FAERS Safety Report 24052327 (Version 1)
Quarter: 2024Q3

REPORT INFORMATION
  Report Type: Report from Study
  Country: US (occurrence: US)
  Receive Date: 20240704
  Receipt Date: 20240704
  Transmission Date: 20241017
  Serious: Yes (Other)
  Sender: JOHNSON AND JOHNSON
  Company Number: US-JNJFOC-20240672518

PATIENT
  Age: 72 Year
  Sex: Female

DRUGS (3)
  1. SPRAVATO [Suspect]
     Active Substance: ESKETAMINE
     Indication: Depression
     Dosage: ^^56 MG, 1 TOTAL DOSE^^
     Dates: start: 20240621, end: 20240621
  2. SPRAVATO [Suspect]
     Active Substance: ESKETAMINE
     Dosage: ^^84 MG, 1 TOTAL DOSE^^
     Dates: start: 20240625, end: 20240625
  3. AIMOVIG [Concomitant]
     Active Substance: ERENUMAB-AOOE
     Indication: Migraine

REACTIONS (12)
  - Paralysis [Unknown]
  - Bruxism [Unknown]
  - Feeling of relaxation [Unknown]
  - Insomnia [Unknown]
  - Anxiety [Unknown]
  - Blood pressure increased [Unknown]
  - Fatigue [Unknown]
  - Dissociation [Unknown]
  - Dizziness [Unknown]
  - Feeling abnormal [Unknown]
  - Headache [Unknown]
  - Photophobia [Unknown]

NARRATIVE: CASE EVENT DATE: 20240601
